FAERS Safety Report 4425845-3 (Version None)
Quarter: 2004Q3

REPORT INFORMATION
  Report Type: 
  Country: None (occurrence: None)
  Receive Date: 20040811
  Receipt Date: 20040727
  Transmission Date: 20050211
  Serious: No
  Sender: FDA-Public Use
  Company Number: 20040700349

PATIENT
  Age: 45 Year
  Sex: Female
  Weight: 57.1532 kg

DRUGS (9)
  1. PROMETHAZINE [Suspect]
     Indication: ANAESTHESIA
     Dosage: 25 MG ONCE IM
     Route: 030
     Dates: start: 20040520, end: 20040520
  2. PROMETHAZINE [Suspect]
     Indication: SURGERY
     Dosage: 25 MG ONCE IM
     Route: 030
     Dates: start: 20040520, end: 20040520
  3. DEMEROL [Concomitant]
  4. VERSED [Concomitant]
  5. IBUPROFEN [Concomitant]
  6. SKELAXIN [Concomitant]
  7. VICODIN (ACETAMINOPHEN) [Concomitant]
  8. HYDROCODONE BITARTRATE [Concomitant]
  9. CLONOPIN (CLONAZEPAM) [Concomitant]

REACTIONS (3)
  - HAEMATOMA INFECTION [None]
  - INJECTION SITE HAEMORRHAGE [None]
  - POST PROCEDURAL COMPLICATION [None]
